FAERS Safety Report 10722142 (Version 5)
Quarter: 2015Q1

REPORT INFORMATION
  Report Type: Spontaneous
  Country: JP (occurrence: JP)
  Receive Date: 20150120
  Receipt Date: 20150313
  Transmission Date: 20150721
  Serious: Yes (Life-Threatening, Hospitalization, Other)
  Sender: FDA-Public Use
  Company Number: JP-AMGEN-JPNSP2015003452

PATIENT
  Age: 66 Year
  Sex: Female
  Weight: 54 kg

DRUGS (4)
  1. TNF [Concomitant]
     Active Substance: UNSPECIFIED INGREDIENT
     Dosage: UNK
     Dates: end: 20150105
  2. RHEUMATREX [Suspect]
     Active Substance: METHOTREXATE SODIUM
     Indication: RHEUMATOID ARTHRITIS
     Dosage: 6 MG, WEEKLY (2 MG IN THE MORNING AND EVENING ON THURSDAY AND AT 2 MG IN THE MORNING ON FRIDAY)
     Route: 048
     Dates: start: 2009, end: 20150105
  3. FOLIAMIN [Concomitant]
     Active Substance: FOLIC ACID
     Dosage: 1 DF, WEEKLY (AFTER BREAKFAST EVERY SUNDAY)
     Route: 048
     Dates: end: 20150105
  4. ENBREL [Suspect]
     Active Substance: ETANERCEPT
     Indication: RHEUMATOID ARTHRITIS
     Dosage: UNK
     Route: 058
     Dates: start: 2011, end: 20150105

REACTIONS (11)
  - Septic shock [Recovering/Resolving]
  - Cellulitis [Recovering/Resolving]
  - Sciatica [Recovering/Resolving]
  - Gait disturbance [Unknown]
  - Disseminated intravascular coagulation [Recovering/Resolving]
  - Acute respiratory distress syndrome [Recovering/Resolving]
  - Fall [Unknown]
  - Muscle abscess [Not Recovered/Not Resolved]
  - Joint injury [Unknown]
  - Acute myocardial infarction [Recovering/Resolving]
  - Staphylococcal sepsis [Recovering/Resolving]

NARRATIVE: CASE EVENT DATE: 20141229
